FAERS Safety Report 8555684-3 (Version None)
Quarter: 2012Q3

REPORT INFORMATION
  Report Type: 
  Country: None (occurrence: None)
  Receive Date: 20120801
  Receipt Date: 20120718
  Transmission Date: 20120928
  Serious: Yes (Hospitalization, Disabling)
  Sender: FDA-Public Use
  Company Number: AT-MYLANLABS-2012S1015026

PATIENT
  Age: 23 Year
  Sex: Female

DRUGS (7)
  1. PROCYCLIDINE HYDROCHLORIDE 2MG TAB [Concomitant]
     Indication: TREMOR
     Dosage: 15 MG/D
     Route: 065
     Dates: start: 20080101
  2. LAMOTRIGINE [Concomitant]
     Indication: GRAND MAL CONVULSION
     Dosage: 100 MG/D, LATER DESCRIBED AS 50MG TWO TIMES A DAY
     Route: 065
     Dates: start: 20070101
  3. BIPERIDEN HYDROCHLORIDE TAB [Concomitant]
     Indication: TREMOR
     Dosage: 8MG/D
     Route: 065
     Dates: start: 20080101, end: 20080101
  4. RISPERIDONE [Suspect]
     Indication: SCHIZOPHRENIA
     Dosage: 6 MG/DAY
     Route: 065
     Dates: start: 20080101, end: 20090101
  5. BIPERIDEN HYDROCHLORIDE TAB [Concomitant]
     Indication: PLEUROTHOTONUS
     Route: 065
     Dates: start: 20090101, end: 20090101
  6. RISPERIDONE [Suspect]
     Dosage: 4 MG/D, LATER DESCRIBED AS RECEIVING 2MG TWO TIMES A DAY
     Route: 065
     Dates: start: 20080101, end: 20090101
  7. BACLOFEN [Concomitant]
     Indication: PLEUROTHOTONUS
     Route: 065
     Dates: start: 20090101

REACTIONS (3)
  - PLEUROTHOTONUS [None]
  - TREMOR [None]
  - DYSKINESIA [None]
